FAERS Safety Report 14198135 (Version 2)
Quarter: 2018Q1

REPORT INFORMATION
  Report Type: Report from Study
  Country: DE (occurrence: DE)
  Receive Date: 20171117
  Receipt Date: 20180115
  Transmission Date: 20180508
  Serious: Yes (Other)
  Sender: FDA-Public Use
  Company Number: DE-BRISTOL-MYERS SQUIBB COMPANY-BMS-2017-102832

PATIENT
  Age: 39 Year
  Sex: Female

DRUGS (2)
  1. IPILIMUMAB [Suspect]
     Active Substance: IPILIMUMAB
     Indication: MALIGNANT MELANOMA
     Dosage: 282 MG, Q3WK
     Route: 065
     Dates: start: 20170214, end: 20170307
  2. NIVOLUMAB [Suspect]
     Active Substance: NIVOLUMAB
     Indication: MALIGNANT MELANOMA
     Dosage: 94 MG, Q3WK
     Route: 042
     Dates: start: 20170214, end: 20170307

REACTIONS (1)
  - Panniculitis [Recovered/Resolved]

NARRATIVE: CASE EVENT DATE: 20170712
